FAERS Safety Report 6380415-5 (Version None)
Quarter: 2009Q3

REPORT INFORMATION
  Report Type: 
  Country: None (occurrence: None)
  Receive Date: 20090929
  Receipt Date: 20090916
  Transmission Date: 20100115
  Serious: Yes (Other)
  Sender: FDA-Public Use
  Company Number: PHHY2009DE40051

PATIENT
  Sex: Female

DRUGS (4)
  1. CGS 20267 T30748+ [Suspect]
     Indication: BREAST CANCER
     Dosage: 2.5 MG, QD
     Route: 048
     Dates: start: 20090407, end: 20090521
  2. CGS 20267 T30748+ [Suspect]
     Indication: ADJUVANT THERAPY
  3. NOVAMINSULFON [Concomitant]
     Dosage: UNK
     Route: 065
     Dates: start: 19940101
  4. ENALAPRIL MALEATE [Concomitant]
     Dosage: UNK
     Route: 065
     Dates: start: 20030101

REACTIONS (6)
  - ANXIETY [None]
  - BONE PAIN [None]
  - CONSTIPATION [None]
  - HYPERHIDROSIS [None]
  - LISTLESS [None]
  - SLEEP DISORDER [None]
